FAERS Safety Report 25327250 (Version 1)
Quarter: 2025Q2

REPORT INFORMATION
  Report Type: Spontaneous
  Country: US (occurrence: US)
  Receive Date: 20250517
  Receipt Date: 20250517
  Transmission Date: 20250716
  Serious: No
  Sender: ROCHE
  Company Number: US-ROCHE-10000281170

PATIENT
  Age: 28 Year
  Sex: Female
  Weight: 61.23 kg

DRUGS (3)
  1. XOLAIR [Suspect]
     Active Substance: OMALIZUMAB
     Indication: Hypersensitivity
     Dosage: STRENGTH: 300 MG/2ML
     Route: 058
     Dates: start: 2019
  2. XOLAIR [Suspect]
     Active Substance: OMALIZUMAB
     Indication: Urticaria
  3. XOLAIR [Suspect]
     Active Substance: OMALIZUMAB
     Indication: Asthma

REACTIONS (5)
  - Product dose omission issue [Unknown]
  - Device issue [Unknown]
  - Needle issue [Unknown]
  - Accidental exposure to product [Unknown]
  - No adverse event [Unknown]

NARRATIVE: CASE EVENT DATE: 20250507
